FAERS Safety Report 7075169-3 (Version None)
Quarter: 2010Q4

REPORT INFORMATION
  Report Type: 
  Country: None (occurrence: None)
  Receive Date: 20101029
  Receipt Date: 20100419
  Transmission Date: 20110411
  Serious: No
  Sender: FDA-Public Use
  Company Number: US-WYE-H14766710

PATIENT
  Age: 66 Year
  Sex: Female
  Weight: 66.74 kg

DRUGS (4)
  1. ALAVERT D-12 [Suspect]
     Indication: HYPERSENSITIVITY
     Route: 048
     Dates: start: 20100417, end: 20100417
  2. ANASTROZOLE [Concomitant]
  3. HYDROCHLOROTHIAZIDE [Concomitant]
  4. THYROID [Concomitant]

REACTIONS (1)
  - URTICARIA [None]
